FAERS Safety Report 20695918 (Version 2)
Quarter: 2022Q2

REPORT INFORMATION
  Report Type: Report from Study
  Country: US (occurrence: US)
  Receive Date: 20220411
  Receipt Date: 20220414
  Transmission Date: 20220720
  Serious: No
  Sender: FDA-Public Use
  Company Number: US-Ipsen Biopharmaceuticals, Inc.-2021-33137

PATIENT
  Age: 40 Year
  Sex: Male

DRUGS (5)
  1. SOMATULINE DEPOT [Suspect]
     Active Substance: LANREOTIDE ACETATE
     Indication: Complications of transplanted liver
     Dosage: 240 MG EVERY 14 DAYS
     Route: 058
     Dates: start: 200808
  2. SOMATULINE DEPOT [Suspect]
     Active Substance: LANREOTIDE ACETATE
     Indication: Neoplasm malignant
     Dosage: 120 MG EVERY 10 DAYS
     Route: 058
  3. SOMATULINE DEPOT [Suspect]
     Active Substance: LANREOTIDE ACETATE
     Indication: Off label use
     Dosage: 90 MG EVERY WEEK
     Route: 058
  4. SOMATULINE DEPOT [Suspect]
     Active Substance: LANREOTIDE ACETATE
     Dosage: 120 MG EVERY 2 WEEKS
     Route: 058
  5. SOMATULINE DEPOT [Suspect]
     Active Substance: LANREOTIDE ACETATE
     Dosage: 120 MG/ 0.5ML EVERY 4 WEEKS
     Route: 058

REACTIONS (9)
  - Diarrhoea [Unknown]
  - COVID-19 [Recovering/Resolving]
  - Bedridden [Recovering/Resolving]
  - Depressed mood [Recovering/Resolving]
  - Off label use [Unknown]
  - Needle issue [Unknown]
  - Syringe issue [Unknown]
  - Product administered by wrong person [Unknown]
  - Inappropriate schedule of product administration [Unknown]

NARRATIVE: CASE EVENT DATE: 20080801
